FAERS Safety Report 25280072 (Version 2)
Quarter: 2025Q4

REPORT INFORMATION
  Report Type: Spontaneous
  Country: JP (occurrence: JP)
  Receive Date: 20250507
  Receipt Date: 20251121
  Transmission Date: 20260117
  Serious: Yes (Hospitalization)
  Sender: EISAI
  Company Number: JP-Eisai-202501259_LEN-RCC_P_1

PATIENT
  Age: 49 Year
  Sex: Male

DRUGS (3)
  1. LENVIMA [Suspect]
     Active Substance: LENVATINIB
     Indication: Renal cell carcinoma
     Route: 048
     Dates: start: 20250108, end: 20250203
  2. LENVIMA [Suspect]
     Active Substance: LENVATINIB
     Dosage: FREQUENCY UNKNOWN.
     Route: 048
  3. KEYTRUDA [Suspect]
     Active Substance: PEMBROLIZUMAB
     Indication: Renal cell carcinoma
     Dosage: 1 COURSES
     Route: 042
     Dates: start: 20250108, end: 20250108

REACTIONS (3)
  - Eyelid ptosis [Recovered/Resolved]
  - Immune-mediated hepatitis [Recovered/Resolved]
  - Myositis [Unknown]

NARRATIVE: CASE EVENT DATE: 20250101
